FAERS Safety Report 5148720-8 (Version None)
Quarter: 2006Q4

REPORT INFORMATION
  Report Type: 
  Country: None (occurrence: None)
  Receive Date: 20061107
  Receipt Date: 20061027
  Transmission Date: 20070319
  Serious: Yes (Hospitalization)
  Sender: FDA-Public Use
  Company Number: TPA2006A01881

PATIENT
  Age: 46 Year
  Sex: Male
  Weight: 99.7913 kg

DRUGS (6)
  1. ACTOS [Suspect]
     Indication: DIABETES MELLITUS
     Dosage: 30 MG, 1 IN 1 D, PER ORAL
     Route: 048
     Dates: end: 20060201
  2. TRICOR [Concomitant]
  3. CRESTOR [Concomitant]
  4. PREVACID [Concomitant]
  5. NOVOLOG MIX 70/30 [Concomitant]
  6. EFFEXOR [Concomitant]

REACTIONS (5)
  - BACK INJURY [None]
  - DIABETES MELLITUS INADEQUATE CONTROL [None]
  - INTERVERTEBRAL DISC PROTRUSION [None]
  - SPINAL CORD INJURY [None]
  - WEIGHT INCREASED [None]
